FAERS Safety Report 9245998 (Version 2)
Quarter: 2013Q2

REPORT INFORMATION
  Report Type: Spontaneous
  Country: ES (occurrence: ES)
  Receive Date: 20130422
  Receipt Date: 20130501
  Transmission Date: 20140414
  Serious: Yes (Other)
  Sender: FDA-Public Use
  Company Number: ES-UCBSA-081484

PATIENT
  Age: 71 Year
  Sex: Male

DRUGS (5)
  1. KEPPRA [Suspect]
     Indication: EPILEPSY
     Route: 048
     Dates: start: 201106, end: 20130403
  2. KEPPRA [Suspect]
     Indication: EPILEPSY
     Route: 048
     Dates: start: 20130403
  3. ATENOLOL [Concomitant]
     Dosage: UNKNOWN DOSE
  4. DUOPLAVIN [Concomitant]
     Indication: PROPHYLAXIS
     Dosage: STRENGTH: 75 MG / 75 MG
     Dates: start: 2012, end: 201302
  5. ADIRO [Concomitant]
     Dosage: UNKNOWN DOSE

REACTIONS (4)
  - Fatigue [Not Recovered/Not Resolved]
  - Muscular weakness [Not Recovered/Not Resolved]
  - Vision blurred [Not Recovered/Not Resolved]
  - Nervousness [Not Recovered/Not Resolved]
